FAERS Safety Report 7806207-5 (Version None)
Quarter: 2011Q4

REPORT INFORMATION
  Report Type: 
  Country: None (occurrence: None)
  Receive Date: 20111011
  Receipt Date: 20111004
  Transmission Date: 20120403
  Serious: No
  Sender: FDA-Public Use
  Company Number: US-B.I. PHARMACEUTICALS,INC./RIDGEFIELD-2011-BP-19032BP

PATIENT
  Sex: Male

DRUGS (9)
  1. CLARITIN [Concomitant]
     Indication: HYPERSENSITIVITY
     Dates: start: 20060101
  2. PRADAXA [Suspect]
     Indication: ANTICOAGULANT THERAPY
  3. LASIX [Concomitant]
     Indication: OEDEMA
     Dates: start: 20060101
  4. ASPIRIN [Concomitant]
     Indication: ATRIAL FIBRILLATION
     Dosage: 40 MG
     Dates: start: 20060101
  5. PRADAXA [Suspect]
     Indication: ATRIAL FIBRILLATION
     Dosage: 300 MG
     Route: 048
     Dates: start: 20110729
  6. PROTONIX [Concomitant]
  7. PRAVASTATIN [Concomitant]
     Indication: BLOOD CHOLESTEROL INCREASED
     Dosage: 20 MG
     Dates: start: 20060101
  8. LASIX [Concomitant]
     Indication: FLUID IMBALANCE
  9. POTASSIUM [Concomitant]
     Indication: BLOOD POTASSIUM ABNORMAL
     Dosage: 20 MEQ
     Dates: start: 20060101

REACTIONS (6)
  - ASTHENOPIA [None]
  - STRABISMUS [None]
  - ABDOMINAL DISCOMFORT [None]
  - FATIGUE [None]
  - NASAL CONGESTION [None]
  - GLOSSODYNIA [None]
